FAERS Safety Report 8575960-8 (Version None)
Quarter: 2012Q3

REPORT INFORMATION
  Report Type: 
  Country: None (occurrence: None)
  Receive Date: 20120807
  Receipt Date: 20120718
  Transmission Date: 20120928
  Serious: No
  Sender: FDA-Public Use
  Company Number: US-009507513-1207USA009282

PATIENT

DRUGS (4)
  1. VICTRELIS [Suspect]
     Dosage: 800 MG, TID (EVERY 7-9 HOURS)
     Route: 048
  2. ASCORBIC ACID [Concomitant]
  3. VITAMIN E [Concomitant]
  4. OMEGA-3-ACID ETHYL ESTERS [Concomitant]

REACTIONS (1)
  - HEPATITIS C RNA INCREASED [None]
